FAERS Safety Report 4748134-6 (Version None)
Quarter: 2005Q3

REPORT INFORMATION
  Report Type: 
  Country: None (occurrence: None)
  Receive Date: 20050816
  Receipt Date: 20050808
  Transmission Date: 20060218
  Serious: No
  Sender: FDA-Public Use
  Company Number: 05H-163-0301979-00

PATIENT
  Age: 19 Year
  Sex: Male

DRUGS (2)
  1. HEPARIN SODIUM [Suspect]
     Indication: ANTICOAGULANT THERAPY
     Dosage: SEE IMAGE
     Route: 042
  2. RABBIT ANTITHYMOCYTE GLOBULIN [Suspect]
     Indication: THERAPEUTIC PROCEDURE
     Dosage: POST OPERATIVE DAY 1

REACTIONS (9)
  - ANURIA [None]
  - COMPLICATIONS OF TRANSPLANTED KIDNEY [None]
  - HAEMATOMA [None]
  - HAEMODIALYSIS [None]
  - HEPARIN-INDUCED THROMBOCYTOPENIA [None]
  - NECROSIS ISCHAEMIC [None]
  - RENAL ISCHAEMIA [None]
  - RENAL TUBULAR NECROSIS [None]
  - THROMBOTIC MICROANGIOPATHY [None]
